FAERS Safety Report 4276253-X (Version None)
Quarter: 2004Q1

REPORT INFORMATION
  Report Type: 
  Country: None (occurrence: None)
  Receive Date: 20040121
  Receipt Date: 20031208
  Transmission Date: 20041129
  Serious: No
  Sender: FDA-Public Use
  Company Number: US-GLAXOSMITHKLINE-A0442321A

PATIENT
  Age: 78 Year
  Sex: Female

DRUGS (1)
  1. VENTOLIN [Suspect]
     Dosage: 2PUFF FOUR TIMES PER DAY
     Route: 055
     Dates: start: 20031101, end: 20031101

REACTIONS (3)
  - BACK PAIN [None]
  - DYSPNOEA [None]
  - OROPHARYNGEAL SWELLING [None]
